FAERS Safety Report 7704601-4 (Version None)
Quarter: 2011Q3

REPORT INFORMATION
  Report Type: 
  Country: None (occurrence: None)
  Receive Date: 20110823
  Receipt Date: 20110816
  Transmission Date: 20111222
  Serious: Yes (Death)
  Sender: FDA-Public Use
  Company Number: US-GLAXOSMITHKLINE-A0932258A

PATIENT
  Age: 71 Year
  Sex: Male

DRUGS (1)
  1. HYCAMTIN [Suspect]
     Indication: PROSTATE CANCER
     Dosage: 4MG CYCLIC
     Route: 065

REACTIONS (2)
  - OFF LABEL USE [None]
  - DEATH [None]
